FAERS Safety Report 4860731-6 (Version None)
Quarter: 2005Q4

REPORT INFORMATION
  Report Type: 
  Country: None (occurrence: None)
  Receive Date: 20051216
  Receipt Date: 20051216
  Transmission Date: 20060501
  Serious: No
  Sender: FDA-Public Use
  Company Number: None

PATIENT
  Sex: Female
  Weight: 77 kg

DRUGS (2)
  1. CYCLOPHOSPHAMIDE [Suspect]
     Indication: BREAST CANCER
     Dosage: SEE IMAGE
     Route: 042
     Dates: start: 20051117, end: 20051117
  2. ADRIAMYCIN [Suspect]
     Dosage: SEE IMAGE
     Route: 042
     Dates: start: 20051117

REACTIONS (4)
  - ERYTHEMA [None]
  - INFECTION [None]
  - PYREXIA [None]
  - WHITE BLOOD CELL COUNT DECREASED [None]
